FAERS Safety Report 24771668 (Version 1)
Quarter: 2024Q4

REPORT INFORMATION
  Report Type: Spontaneous
  Country: FR (occurrence: FR)
  Receive Date: 20241224
  Receipt Date: 20241224
  Transmission Date: 20250115
  Serious: Yes (Other)
  Sender: PFIZER
  Company Number: FR-PFIZER INC-202400327746

PATIENT

DRUGS (2)
  1. VOXELOTOR [Suspect]
     Active Substance: VOXELOTOR
     Indication: Haemolytic anaemia
     Dosage: UNK
  2. VOXELOTOR [Suspect]
     Active Substance: VOXELOTOR
     Dosage: 500 MG

REACTIONS (2)
  - Toxic skin eruption [Unknown]
  - Off label use [Unknown]
